FAERS Safety Report 10270395 (Version 1)
Quarter: 2014Q2

REPORT INFORMATION
  Report Type: Spontaneous
  Country: AU (occurrence: None)
  Receive Date: 20140627
  Receipt Date: 20140627
  Transmission Date: 20141212
  Serious: Yes (Other)
  Sender: FDA-Public Use
  Company Number: 2014000195

PATIENT
  Age: 63 Year
  Sex: Female

DRUGS (1)
  1. ACEON [Suspect]
     Indication: HYPERTENSION
     Route: 048
     Dates: start: 2008, end: 2012

REACTIONS (4)
  - Renal colic [None]
  - Diverticulitis [None]
  - Cough [None]
  - Diarrhoea [None]
